FAERS Safety Report 8298326-7 (Version None)
Quarter: 2012Q2

REPORT INFORMATION
  Report Type: 
  Country: None (occurrence: None)
  Receive Date: 20120419
  Receipt Date: 20120413
  Transmission Date: 20120825
  Serious: Yes (Life-Threatening)
  Sender: FDA-Public Use
  Company Number: PHHY2012BR031992

PATIENT
  Age: 60 Year
  Sex: Female

DRUGS (2)
  1. DIOVAN [Suspect]
     Indication: HYPERTENSION
     Dosage: 160 MG, DAILY
  2. DIOVAN [Suspect]
     Dosage: 0.5 TABLET (160 MG), DAILY

REACTIONS (9)
  - WRONG TECHNIQUE IN DRUG USAGE PROCESS [None]
  - FEELING OF BODY TEMPERATURE CHANGE [None]
  - ARRHYTHMIA [None]
  - COLD SWEAT [None]
  - VOMITING [None]
  - DYSPNOEA [None]
  - MICTURITION DISORDER [None]
  - GASTROINTESTINAL MOTILITY DISORDER [None]
  - BLOOD PRESSURE DECREASED [None]
